FAERS Safety Report 25582811 (Version 2)
Quarter: 2025Q3

REPORT INFORMATION
  Report Type: Spontaneous
  Country: JP (occurrence: JP)
  Receive Date: 20250720
  Receipt Date: 20250910
  Transmission Date: 20251020
  Serious: Yes (Life-Threatening, Hospitalization, Other)
  Sender: BRISTOL-MYERS SQUIBB COMPANY
  Company Number: JP-TAIHO-2025-005837

PATIENT
  Age: 73 Year
  Sex: Female

DRUGS (2)
  1. ABRAXANE [Suspect]
     Active Substance: PACLITAXEL
     Indication: Pancreatic carcinoma
     Dosage: ON DAYS 1 AND 8 OF EACH 21-DAY CYCLE, 5 CYCLES DAILY DOSE: 140 MILLIGRAM(S)
  2. GEMCITABINE HYDROCHLORIDE [Suspect]
     Active Substance: GEMCITABINE HYDROCHLORIDE
     Indication: Pancreatic carcinoma
     Dosage: ON DAYS 1 AND 8 OF EACH 21-DAY CYCLE, 5 CYCLES DAILY DOSE: 1150 MILLIGRAM(S)

REACTIONS (2)
  - Pulmonary oedema [Recovered/Resolved]
  - Neutrophil count decreased [Recovered/Resolved]

NARRATIVE: CASE EVENT DATE: 20250515
